FAERS Safety Report 5949216-3 (Version None)
Quarter: 2008Q4

REPORT INFORMATION
  Report Type: 
  Country: None (occurrence: None)
  Receive Date: 20081021
  Receipt Date: 20071116
  Transmission Date: 20090506
  Serious: Yes (Other)
  Sender: FDA-Public Use
  Company Number: HQWYE591326AUG04

PATIENT
  Age: 58 Year
  Sex: Female
  Weight: 88.53 kg

DRUGS (4)
  1. PREMARIN [Suspect]
  2. CYCRIN [Suspect]
  3. MEDROXYPROGESTERONE [Suspect]
  4. MEDROXYPROGESTERONE [Suspect]

REACTIONS (1)
  - BREAST CANCER [None]
